FAERS Safety Report 20639225 (Version 1)
Quarter: 2022Q1

REPORT INFORMATION
  Report Type: Spontaneous
  Country: US (occurrence: US)
  Receive Date: 20220326
  Receipt Date: 20220326
  Transmission Date: 20220423
  Serious: No
  Sender: FDA-Public Use
  Company Number: US-BRISTOL-MYERS SQUIBB COMPANY-2022-010769

PATIENT
  Age: 86 Year
  Sex: Female

DRUGS (2)
  1. REVLIMID [Suspect]
     Active Substance: LENALIDOMIDE
     Indication: Diffuse large B-cell lymphoma
     Dosage: DAILY  FOR 21 DAYS
     Dates: start: 20220311
  2. IMBRUVICA [Concomitant]
     Active Substance: IBRUTINIB
     Indication: Diffuse large B-cell lymphoma
     Route: 065
     Dates: start: 20220311

REACTIONS (2)
  - Otorrhoea [Unknown]
  - Intentional product use issue [Unknown]
